FAERS Safety Report 6078383-9 (Version None)
Quarter: 2009Q1

REPORT INFORMATION
  Report Type: 
  Country: None (occurrence: None)
  Receive Date: 20090213
  Receipt Date: 20090203
  Transmission Date: 20090719
  Serious: Yes (Other)
  Sender: FDA-Public Use
  Company Number: IT-JNJCH-2009003787

PATIENT

DRUGS (1)
  1. ASPIRIN [Suspect]
     Indication: PLATELET FUNCTION TEST
     Dosage: TEXT:100 MG DAILY
     Route: 065

REACTIONS (2)
  - CARDIAC DISORDER [None]
  - PLATELET FUNCTION TEST ABNORMAL [None]
